FAERS Safety Report 20574451 (Version 2)
Quarter: 2022Q1

REPORT INFORMATION
  Report Type: Report from Study
  Country: CN (occurrence: CN)
  Receive Date: 20220309
  Receipt Date: 20220331
  Transmission Date: 20220423
  Serious: Yes (Hospitalization)
  Sender: FDA-Public Use
  Company Number: CN-ABBVIE-22P-035-4295478-00

PATIENT
  Age: 55 Year
  Sex: Male
  Weight: 57 kg

DRUGS (11)
  1. VENETOCLAX [Suspect]
     Active Substance: VENETOCLAX
     Indication: Myelodysplastic syndrome
     Dosage: 14 DAYS ON, 14 DAYS OFF
     Route: 048
     Dates: start: 20211103, end: 20211116
  2. VENETOCLAX [Suspect]
     Active Substance: VENETOCLAX
     Dosage: 14 DAYS ON, 14 DAYS OFF
     Route: 048
     Dates: start: 20220210
  3. AZACITIDINE [Suspect]
     Active Substance: AZACITIDINE
     Indication: Myelodysplastic syndrome
     Dosage: ON 7 DAYS WITHIN THE FIRST 9 CALENDAR DAYS PER EACH 28-DAY CYCLE
     Route: 058
     Dates: start: 20211103, end: 20211109
  4. AZACITIDINE [Suspect]
     Active Substance: AZACITIDINE
     Dosage: ON 7 DAYS WITHIN THE FIRST 9 CALENDAR DAYS PER EACH 28-DAY CYCLE
     Route: 058
     Dates: start: 20220210
  5. METHYLPREDNISOLONE [Concomitant]
     Active Substance: METHYLPREDNISOLONE
     Indication: Ileus
     Route: 042
     Dates: start: 20211118
  6. METHYLPREDNISOLONE [Concomitant]
     Active Substance: METHYLPREDNISOLONE
     Indication: Gastrointestinal infection
  7. VORICONAZOLE [Concomitant]
     Active Substance: VORICONAZOLE
     Indication: Ileus
     Route: 042
     Dates: start: 20211118
  8. VORICONAZOLE [Concomitant]
     Active Substance: VORICONAZOLE
     Indication: Gastrointestinal infection
  9. MEROPENEM [Concomitant]
     Active Substance: MEROPENEM
     Indication: Ileus
     Route: 042
     Dates: start: 20211118
  10. MEROPENEM [Concomitant]
     Active Substance: MEROPENEM
     Indication: Gastrointestinal infection
  11. ERYTHROMYCIN [Concomitant]
     Active Substance: ERYTHROMYCIN
     Indication: Herpes simplex
     Dosage: 1 APPLICATION
     Route: 061
     Dates: start: 20211205

REACTIONS (2)
  - Platelet count decreased [Not Recovered/Not Resolved]
  - Anaemia [Recovered/Resolved]

NARRATIVE: CASE EVENT DATE: 20220214
